FAERS Safety Report 11942330 (Version 2)
Quarter: 2016Q1

REPORT INFORMATION
  Report Type: Spontaneous
  Country: DE (occurrence: DE)
  Receive Date: 20160125
  Receipt Date: 20160204
  Transmission Date: 20160526
  Serious: Yes (Life-Threatening)
  Sender: FDA-Public Use
  Company Number: DE-WEST-WARD PHARMACEUTICALS CORP.-DE-H14001-16-00112

PATIENT
  Age: 67 Year
  Sex: Female
  Weight: 56 kg

DRUGS (1)
  1. RIBOCARBO-L [Suspect]
     Active Substance: CARBOPLATIN
     Indication: OVARIAN CANCER RECURRENT
     Route: 042
     Dates: start: 20151229, end: 20151229

REACTIONS (7)
  - Tachycardia [Recovered/Resolved]
  - Hypotension [Recovered/Resolved]
  - Dysphonia [Recovered/Resolved]
  - Pharyngeal paraesthesia [Recovered/Resolved]
  - Nausea [Recovered/Resolved]
  - Cold sweat [Recovered/Resolved]
  - Hyporesponsive to stimuli [Recovered/Resolved]

NARRATIVE: CASE EVENT DATE: 20151229
